FAERS Safety Report 5245930-6 (Version None)
Quarter: 2007Q1

REPORT INFORMATION
  Report Type: 
  Country: None (occurrence: None)
  Receive Date: 20070221
  Receipt Date: 20070214
  Transmission Date: 20070707
  Serious: Yes (Hospitalization)
  Sender: FDA-Public Use
  Company Number: 2007SP002765

PATIENT
  Age: 9 Month
  Sex: Male
  Weight: 9 kg

DRUGS (1)
  1. BETAMETHASONE [Suspect]
     Indication: DRUG USE FOR UNKNOWN INDICATION
     Dosage: PO
     Route: 048
     Dates: start: 20061201, end: 20061203

REACTIONS (2)
  - ARTHRITIS [None]
  - CONDITION AGGRAVATED [None]
